FAERS Safety Report 8984806 (Version 2)
Quarter: 2013Q1

REPORT INFORMATION
  Report Type: Report from Study
  Country: CA (occurrence: CA)
  Receive Date: 20121225
  Receipt Date: 20130111
  Transmission Date: 20140127
  Serious: Yes (Hospitalization)
  Sender: FDA-Public Use
  Company Number: CA-JNJFOC-20121208208

PATIENT
  Age: 65 Year
  Sex: Male
  Weight: 91.8 kg

DRUGS (1)
  1. REMICADE [Suspect]
     Indication: CROHN^S DISEASE
     Dosage: ONCE EVERY 0,2,6 AND THEN 8 WEEKS.
     Route: 042
     Dates: start: 20121030

REACTIONS (1)
  - Angina pectoris [Recovering/Resolving]
